FAERS Safety Report 15315597 (Version 1)
Quarter: 2018Q3

REPORT INFORMATION
  Report Type: Spontaneous
  Country: NL (occurrence: NL)
  Receive Date: 20180824
  Receipt Date: 20180824
  Transmission Date: 20181010
  Serious: Yes (Death)
  Sender: FDA-Public Use
  Company Number: NL-BAUSCH-BL-2018-023127

PATIENT
  Age: 8 Decade
  Sex: Male

DRUGS (2)
  1. CYCLOPHOSPHAMIDE. [Suspect]
     Active Substance: CYCLOPHOSPHAMIDE
     Indication: CHRONIC LYMPHOCYTIC LEUKAEMIA
     Route: 065
  2. PREDNISOLONE. [Suspect]
     Active Substance: PREDNISOLONE
     Indication: CHRONIC LYMPHOCYTIC LEUKAEMIA
     Route: 065

REACTIONS (9)
  - Respiratory failure [Fatal]
  - Sepsis [Fatal]
  - Listeriosis [Fatal]
  - Cardiac failure [Fatal]
  - Neutropenia [Fatal]
  - Respiratory tract infection fungal [Fatal]
  - Meningitis listeria [Fatal]
  - Pseudomonas infection [Fatal]
  - Bronchopulmonary aspergillosis [Fatal]
